FAERS Safety Report 11816028 (Version 1)
Quarter: 2015Q4

REPORT INFORMATION
  Report Type: Spontaneous
  Country: US (occurrence: US)
  Receive Date: 20151209
  Receipt Date: 20151209
  Transmission Date: 20160305
  Serious: No
  Sender: FDA-Public Use
  Company Number: US-GALDERMA-US15000543

PATIENT
  Sex: Female

DRUGS (5)
  1. NEUTROGENA SENSITIVE SKIN DAILY FACIAL WASH [Concomitant]
     Indication: THERAPEUTIC SKIN CARE TOPICAL
     Route: 061
  2. ZYRTEC (CETIRIZINE) [Concomitant]
     Indication: MECHANICAL URTICARIA
     Route: 048
  3. ALLERGY MEDICATION [Concomitant]
     Active Substance: DIPHENHYDRAMINE HYDROCHLORIDE
     Indication: MECHANICAL URTICARIA
     Route: 048
  4. METRONIDAZOLE (METRONIDAZOLE) [Suspect]
     Active Substance: METRONIDAZOLE
     Indication: ROSACEA
     Route: 061
     Dates: start: 201411, end: 201411
  5. BARE MINERALS DRY FONDATION [Concomitant]
     Route: 061

REACTIONS (1)
  - Rash [Recovered/Resolved]

NARRATIVE: CASE EVENT DATE: 2014
